FAERS Safety Report 4972049-1 (Version None)
Quarter: 2006Q2

REPORT INFORMATION
  Report Type: 
  Country: None (occurrence: None)
  Receive Date: 20060413
  Receipt Date: 20060404
  Transmission Date: 20061013
  Serious: Yes (Hospitalization)
  Sender: FDA-Public Use
  Company Number: NL-ROCHE-443033

PATIENT
  Age: 68 Year
  Sex: Male

DRUGS (3)
  1. CAPECITABINE [Suspect]
     Dosage: DAYS 1-14
     Route: 048
     Dates: start: 20060214
  2. AVASTIN [Suspect]
     Dosage: ON DAY 1
     Route: 042
     Dates: start: 20060214
  3. OXALIPLATIN [Suspect]
     Dosage: ON DAY 1
     Route: 042
     Dates: start: 20060214

REACTIONS (3)
  - HICCUPS [None]
  - NAUSEA [None]
  - VOMITING [None]
